FAERS Safety Report 14349848 (Version 2)
Quarter: 2018Q1

REPORT INFORMATION
  Report Type: Spontaneous
  Country: US (occurrence: US)
  Receive Date: 20180104
  Receipt Date: 20180104
  Transmission Date: 20180509
  Serious: No
  Sender: FDA-Public Use
  Company Number: US-DRREDDYS-USA/USA/17/0086451

PATIENT
  Sex: Female

DRUGS (2)
  1. NICOTINE. [Suspect]
     Active Substance: NICOTINE
     Indication: SMOKING CESSATION THERAPY
     Route: 062
  2. NICOTINE. [Suspect]
     Active Substance: NICOTINE
     Route: 062

REACTIONS (8)
  - Urticaria [Not Recovered/Not Resolved]
  - Drug prescribing error [Unknown]
  - Product adhesion issue [Unknown]
  - Drug dose omission [Unknown]
  - Nicotine dependence [Unknown]
  - Prescribed overdose [Unknown]
  - Wrong technique in product usage process [Unknown]
  - Pruritus [Not Recovered/Not Resolved]
